FAERS Safety Report 8617567 (Version 2)
Quarter: 2012Q4

REPORT INFORMATION
  Report Type: Report from Study
  Country: CL (occurrence: CL)
  Receive Date: 20120615
  Receipt Date: 20120830
  Transmission Date: 20130627
  Serious: Yes (Death)
  Sender: FDA-Public Use
  Company Number: CL-PFIZER INC-2011122407

PATIENT
  Age: 62 Year
  Sex: Male
  Weight: 48.6 kg

DRUGS (7)
  1. AXITINIB [Suspect]
     Indication: METASTATIC RENAL CELL CARCINOMA
     Dosage: 5 mg, 2x/day
     Route: 048
     Dates: start: 20101203, end: 20110530
  2. ACETAMINOPHEN [Concomitant]
     Indication: BACK PAIN
     Dosage: 1 g, 4x/day
     Route: 048
     Dates: start: 20110530
  3. METOCLOPRAMIDE [Concomitant]
     Indication: NAUSEA
     Dosage: 20 mg, 3x/day
     Route: 048
     Dates: start: 20110530
  4. TRAMADOL [Concomitant]
     Indication: BACK PAIN
     Dosage: 100 mg, 4x/day
     Route: 048
     Dates: start: 20110121
  5. ENALTEN [Concomitant]
     Indication: HYPERTENSION
     Dosage: 10 mg, 1x/day
     Route: 048
     Dates: start: 20110321
  6. FAMOTIDINE [Concomitant]
     Indication: PROPHYLAXIS AGAINST GASTROINTESTINAL ULCER
     Dosage: 40 mg, 1x/day
     Route: 048
     Dates: start: 20110321, end: 20110523
  7. FAMOTIDINE [Concomitant]
     Dosage: UNK
     Dates: start: 201105

REACTIONS (1)
  - Impaired gastric emptying [Fatal]
